FAERS Safety Report 9742827 (Version 2)
Quarter: 2013Q4

REPORT INFORMATION
  Report Type: Spontaneous
  Country: GB (occurrence: GB)
  Receive Date: 20131210
  Receipt Date: 20131210
  Transmission Date: 20140711
  Serious: Yes (Hospitalization, Other)
  Sender: FDA-Public Use
  Company Number: GB-AMGEN-GBRSP2013082106

PATIENT
  Sex: Female

DRUGS (3)
  1. XGEVA [Suspect]
     Indication: METASTASES TO BONE
     Dosage: UNK
     Route: 058
     Dates: start: 201308
  2. CARBOPLATIN [Concomitant]
     Indication: PROPHYLAXIS
  3. GEMCITABINE [Concomitant]
     Indication: PROPHYLAXIS

REACTIONS (9)
  - Hyperparathyroidism [Unknown]
  - Vitamin D deficiency [Unknown]
  - Pain [Unknown]
  - Discomfort [Unknown]
  - Pleural effusion [Unknown]
  - Computerised tomogram thorax abnormal [Unknown]
  - Asthenia [Unknown]
  - Diarrhoea [Unknown]
  - Hypocalcaemia [Recovered/Resolved]
